FAERS Safety Report 4810715-9 (Version None)
Quarter: 2005Q4

REPORT INFORMATION
  Report Type: 
  Country: None (occurrence: None)
  Receive Date: 20051026
  Receipt Date: 20051014
  Transmission Date: 20060501
  Serious: Yes (Death, Hospitalization)
  Sender: FDA-Public Use
  Company Number: FR-MERCK-0510FRA00040

PATIENT
  Age: 65 Year
  Sex: Male

DRUGS (8)
  1. PRIMAXIN [Suspect]
     Indication: PSEUDOMONAS INFECTION
     Route: 042
     Dates: start: 20050512
  2. SULFAMETHOXAZOLE AND TRIMETHOPRIM [Suspect]
     Route: 042
     Dates: start: 20050512, end: 20050523
  3. SULFAMETHOXAZOLE AND TRIMETHOPRIM [Suspect]
     Route: 042
     Dates: start: 20050527
  4. CIPROFLOXACIN HYDROCHLORIDE [Suspect]
     Indication: INFECTION
     Route: 042
     Dates: start: 20050512, end: 20050516
  5. HEPARIN SODIUM [Suspect]
     Indication: THROMBOSIS PROPHYLAXIS
     Route: 042
  6. LINEZOLID [Suspect]
     Indication: INFECTION
     Route: 042
     Dates: start: 20050514, end: 20050519
  7. LINEZOLID [Suspect]
     Route: 042
     Dates: start: 20050520
  8. VANCOMYCIN [Suspect]
     Indication: INFECTION
     Route: 042
     Dates: start: 20050512, end: 20050514

REACTIONS (2)
  - PLATELET COUNT DECREASED [None]
  - SEPTIC SHOCK [None]
